FAERS Safety Report 15165982 (Version 6)
Quarter: 2019Q1

REPORT INFORMATION
  Report Type: Report from Study
  Country: CA (occurrence: CA)
  Receive Date: 20180719
  Receipt Date: 20190129
  Transmission Date: 20190417
  Serious: Yes (Hospitalization)
  Sender: FDA-Public Use
  Company Number: CA-GLAXOSMITHKLINE-CA2018GSK125709

PATIENT
  Sex: Female

DRUGS (2)
  1. ROFACT (RIFAMPICIN) [Suspect]
     Active Substance: RIFAMPIN
     Indication: PRODUCT USED FOR UNKNOWN INDICATION
     Dosage: UNK
  2. MEPOLIZUMAB [Suspect]
     Active Substance: MEPOLIZUMAB
     Indication: ASTHMA
     Dosage: 100 MG, Z(MONTHLY)
     Route: 042

REACTIONS (13)
  - Sciatica [Unknown]
  - Malaise [Unknown]
  - Occipital neuralgia [Unknown]
  - Back pain [Not Recovered/Not Resolved]
  - Immune system disorder [Unknown]
  - Scar [Unknown]
  - Insomnia [Unknown]
  - Headache [Unknown]
  - Vomiting [Unknown]
  - General physical health deterioration [Unknown]
  - Alopecia [Unknown]
  - Neuralgia [Unknown]
  - Bacterial infection [Not Recovered/Not Resolved]
